FAERS Safety Report 9807429 (Version 1)
Quarter: 2014Q1

REPORT INFORMATION
  Report Type: Spontaneous
  Country: US (occurrence: US)
  Receive Date: 20140110
  Receipt Date: 20140110
  Transmission Date: 20141002
  Serious: No
  Sender: FDA-Public Use
  Company Number: US-PFIZER INC-2014004726

PATIENT
  Sex: Female

DRUGS (1)
  1. ADVIL [Suspect]
     Indication: ARTHRALGIA
     Dosage: UNK
     Dates: start: 201312, end: 201401

REACTIONS (3)
  - Inhibitory drug interaction [Unknown]
  - Syncope [Unknown]
  - Hypertension [Unknown]
